FAERS Safety Report 25707461 (Version 2)
Quarter: 2025Q3

REPORT INFORMATION
  Report Type: Spontaneous
  Country: US (occurrence: US)
  Receive Date: 20250820
  Receipt Date: 20250820
  Transmission Date: 20251020
  Serious: No
  Sender: ASTELLAS
  Company Number: US-ASTELLAS-2025-AER-012879

PATIENT
  Age: 59 Year
  Sex: Male

DRUGS (3)
  1. XTANDI [Suspect]
     Active Substance: ENZALUTAMIDE
     Indication: Hormone-dependent prostate cancer
     Dosage: 80 MG TWICE DAILY
     Route: 048
     Dates: start: 202411, end: 20250302
  2. XTANDI [Suspect]
     Active Substance: ENZALUTAMIDE
     Route: 048
     Dates: start: 20250303
  3. LUPRON [Concomitant]
     Active Substance: LEUPROLIDE ACETATE
     Indication: Hormone-dependent prostate cancer
     Dosage: EVERY THREE MONTHS
     Route: 065

REACTIONS (1)
  - Inappropriate schedule of product administration [Unknown]
